FAERS Safety Report 5271394-2 (Version None)
Quarter: 2007Q1

REPORT INFORMATION
  Report Type: 
  Country: None (occurrence: None)
  Receive Date: 20070321
  Receipt Date: 20070309
  Transmission Date: 20070707
  Serious: Yes (Hospitalization, Other)
  Sender: FDA-Public Use
  Company Number: US-ELI_LILLY_AND_COMPANY-US200701004791

PATIENT
  Sex: Female

DRUGS (1)
  1. PROZAC [Suspect]
     Indication: MAJOR DEPRESSION
     Dosage: 40 MG, UNK
     Route: 048
     Dates: end: 20070101

REACTIONS (4)
  - BIPOLAR DISORDER [None]
  - BLOOD PRESSURE INCREASED [None]
  - BLOOD SODIUM DECREASED [None]
  - CONVULSION [None]
